FAERS Safety Report 9818010 (Version 1)
Quarter: 2013Q4

REPORT INFORMATION
  Report Type: Spontaneous
  Country: US (occurrence: None)
  Receive Date: 20131223
  Receipt Date: 20131223
  Transmission Date: 20140711
  Serious: No
  Sender: FDA-Public Use
  Company Number: 218920

PATIENT
  Age: 42 Year
  Sex: Female

DRUGS (7)
  1. PICATO GEL [Suspect]
     Indication: ACTINIC KERATOSIS
     Route: 061
     Dates: start: 20120908, end: 20120910
  2. PROGRAF (TACROLIMUS) [Concomitant]
  3. CELLCEPT (MYCOPHENOLATE MOFETIL) TABLET [Concomitant]
  4. INSULIN (INSULIN) [Concomitant]
  5. PROCRIT (ERYTHROPOETIN) [Concomitant]
  6. SENSIPAR (CINACALCET HYDROCHLORIDE) [Concomitant]
  7. LAMICTAL (LAMOTRIGINE) [Concomitant]

REACTIONS (6)
  - Swelling face [None]
  - Periorbital oedema [None]
  - Blister [None]
  - Erythema [None]
  - Pain [None]
  - Scab [None]
